FAERS Safety Report 13110125 (Version 1)
Quarter: 2017Q1

REPORT INFORMATION
  Report Type: Spontaneous
  Country: US (occurrence: US)
  Receive Date: 20170112
  Receipt Date: 20170112
  Transmission Date: 20170428
  Serious: No
  Sender: FDA-Public Use
  Company Number: US-ROCHE-1213885

PATIENT

DRUGS (2)
  1. ACTILYSE [Suspect]
     Active Substance: ALTEPLASE
     Indication: VENOUS OCCLUSION
     Dosage: 2 MG/H FOR A MAX. OF 100 MG
     Route: 042
  2. HEPARIN [Concomitant]
     Active Substance: HEPARIN SODIUM
     Dosage: 500 IU/H
     Route: 065

REACTIONS (1)
  - Catheter site haemorrhage [Unknown]
